FAERS Safety Report 6856472-6 (Version None)
Quarter: 2010Q3

REPORT INFORMATION
  Report Type: 
  Country: None (occurrence: None)
  Receive Date: 20100719
  Receipt Date: 20100707
  Transmission Date: 20110219
  Serious: Yes (Hospitalization)
  Sender: FDA-Public Use
  Company Number: US-ROCHE-710341

PATIENT
  Sex: Male
  Weight: 106.6 kg

DRUGS (6)
  1. ACCUTANE [Suspect]
     Route: 048
     Dates: start: 20070602, end: 20070707
  2. ACCUTANE [Suspect]
     Route: 048
     Dates: start: 20071201, end: 20080301
  3. SOTRET [Suspect]
     Route: 048
     Dates: start: 20070707, end: 20071201
  4. ZOLOFT [Concomitant]
  5. ZOLOFT [Concomitant]
  6. KLONOPIN [Concomitant]
     Dosage: AS NEEDED

REACTIONS (2)
  - SUICIDAL IDEATION [None]
  - SUICIDE ATTEMPT [None]
